FAERS Safety Report 4389554-1 (Version None)
Quarter: 2004Q2

REPORT INFORMATION
  Report Type: 
  Country: None (occurrence: None)
  Receive Date: 20040629
  Receipt Date: 20040422
  Transmission Date: 20050107
  Serious: Yes (Hospitalization)
  Sender: FDA-Public Use
  Company Number: US-JNJFOC-20040401921

PATIENT
  Age: 66 Year
  Sex: Female
  Weight: 81.6475 kg

DRUGS (2)
  1. DURAGESIC [Suspect]
     Indication: PAIN
     Dosage: 150 UG/HR, 1 IN 72 HOUR, TRANSDERMAL
     Route: 062
     Dates: start: 20040205, end: 20040310
  2. HYDROCODONE BITARTRATE [Suspect]
     Indication: PAIN
     Dosage: 7.5/750, 1-2 TABLETS, EVERY 4 -6 HOURS , AS NEEDED, MAXIMUM OF SIX PER DAY

REACTIONS (6)
  - CELLULITIS [None]
  - CONFUSIONAL STATE [None]
  - LOSS OF CONSCIOUSNESS [None]
  - MEDICATION ERROR [None]
  - MEMORY IMPAIRMENT [None]
  - MOTOR DYSFUNCTION [None]
